FAERS Safety Report 13352326 (Version 1)
Quarter: 2017Q1

REPORT INFORMATION
  Report Type: Spontaneous
  Country: US (occurrence: US)
  Receive Date: 20170320
  Receipt Date: 20170320
  Transmission Date: 20170429
  Serious: No
  Sender: FDA-Public Use
  Company Number: US-SA-2017SA006488

PATIENT
  Age: 74 Year
  Sex: Female
  Weight: 75.29 kg

DRUGS (5)
  1. LIPITOR [Concomitant]
     Active Substance: ATORVASTATIN CALCIUM
     Route: 065
  2. NASACORT ALLERGY 24HR [Suspect]
     Active Substance: TRIAMCINOLONE ACETONIDE
     Indication: VIRAL INFECTION
     Dosage: DOSE:2 SPRAYS IN EACH NOSTRIL
     Route: 045
     Dates: end: 20170110
  3. SYNTHROID [Concomitant]
     Active Substance: LEVOTHYROXINE SODIUM
     Dosage: 150 M
     Route: 065
  4. NASACORT ALLERGY 24HR [Suspect]
     Active Substance: TRIAMCINOLONE ACETONIDE
     Indication: SINUS DISORDER
     Dosage: DOSE:2 SPRAYS IN EACH NOSTRIL
     Route: 045
     Dates: end: 20170110
  5. LISINOPRIL. [Concomitant]
     Active Substance: LISINOPRIL
     Route: 065

REACTIONS (1)
  - Foreign body sensation in eyes [Recovered/Resolved]

NARRATIVE: CASE EVENT DATE: 20170110
